FAERS Safety Report 12982821 (Version 1)
Quarter: 2016Q4

REPORT INFORMATION
  Report Type: Spontaneous
  Country: FR (occurrence: FR)
  Receive Date: 20161129
  Receipt Date: 20161129
  Transmission Date: 20170207
  Serious: Yes (Death)
  Sender: FDA-Public Use
  Company Number: FR-PFIZER INC-2016548981

PATIENT
  Age: 41 Year
  Sex: Female

DRUGS (16)
  1. PPSB /01275601/ [Concomitant]
     Dosage: 3500 IU, UNK
     Dates: start: 201510
  2. ISUPREL [Concomitant]
     Active Substance: ISOPROTERENOL HYDROCHLORIDE
     Indication: ATRIOVENTRICULAR BLOCK COMPLETE
     Dosage: 8 ML/HOUR
     Dates: start: 201510
  3. REVATIO [Suspect]
     Active Substance: SILDENAFIL CITRATE
     Dosage: UNK
     Route: 048
     Dates: start: 201510
  4. COROTROPE [Interacting]
     Active Substance: MILRINONE
     Dosage: UNK
     Route: 048
     Dates: start: 201510
  5. NITRIC OXIDE. [Interacting]
     Active Substance: NITRIC OXIDE
     Dosage: 20 PPM
     Route: 055
     Dates: start: 20151018, end: 20151019
  6. LASILIX /00032601/ [Concomitant]
     Active Substance: FUROSEMIDE
     Dosage: HIGH DOSES
  7. SOLU-MEDROL [Concomitant]
     Active Substance: METHYLPREDNISOLONE SODIUM SUCCINATE
     Indication: IMMUNOSUPPRESSANT DRUG THERAPY
     Dosage: 300 MG, ^TWICE^
     Dates: start: 201510
  8. FIBRINOGEN [Concomitant]
     Active Substance: FIBRINOGEN HUMAN
     Dosage: 1.5 G, UNK
     Dates: start: 201510
  9. CEFUROXIME. [Concomitant]
     Active Substance: CEFUROXIME
     Indication: ANTIBIOTIC PROPHYLAXIS
     Dosage: UNK
     Dates: start: 201510
  10. ADRENALINE /00003901/ [Concomitant]
     Active Substance: EPINEPHRINE
     Indication: ATRIOVENTRICULAR BLOCK COMPLETE
     Dosage: 0.1 UG/KG/MIN
     Dates: start: 201510, end: 201510
  11. LEVOTHYROX [Concomitant]
     Active Substance: LEVOTHYROXINE
     Dosage: 150 UG, DAILY
  12. PERINDOPRIL [Concomitant]
     Active Substance: PERINDOPRIL
     Dosage: 2 MG, DAILY
  13. PREVISCAN /00789001/ [Concomitant]
     Active Substance: FLUINDIONE
  14. THYMOGLOBULIN [Concomitant]
     Active Substance: LAPINE T-LYMPHOCYTE IMMUNE GLOBULIN
     Indication: IMMUNOSUPPRESSANT DRUG THERAPY
     Dosage: 6 DF, UNK
     Dates: start: 201510
  15. CORDARONE [Concomitant]
     Active Substance: AMIODARONE HYDROCHLORIDE
  16. DOBUTAMINE [Concomitant]
     Active Substance: DOBUTAMINE\DOBUTAMINE HYDROCHLORIDE
     Indication: ATRIOVENTRICULAR BLOCK COMPLETE
     Dosage: 7 UG/KG/MIN
     Dates: start: 201510

REACTIONS (3)
  - Haemolysis [Fatal]
  - Drug interaction [Fatal]
  - Methaemoglobinaemia [Fatal]

NARRATIVE: CASE EVENT DATE: 201510
